FAERS Safety Report 4796292-X (Version None)
Quarter: 2005Q4

REPORT INFORMATION
  Report Type: 
  Country: None (occurrence: None)
  Receive Date: 20051007
  Receipt Date: 20050928
  Transmission Date: 20060501
  Serious: Yes (Hospitalization)
  Sender: FDA-Public Use
  Company Number: 2005-03658

PATIENT
  Age: 84 Year
  Sex: Female

DRUGS (13)
  1. PREDNISONE [Suspect]
     Indication: TEMPORAL ARTERITIS
     Dosage: SEE IMAGE
     Route: 048
     Dates: start: 20020101, end: 20050801
  2. PREDNISONE [Suspect]
     Indication: TEMPORAL ARTERITIS
     Dosage: SEE IMAGE
     Route: 048
     Dates: start: 20050823
  3. SOLU-CORTEF [Suspect]
     Indication: TEMPORAL ARTERITIS
     Dosage: INTRAVENOUS
     Route: 042
     Dates: start: 20050801, end: 20050901
  4. PAXIL [Suspect]
     Indication: DEPRESSION
     Dosage: 1 TABLET, BID, ORAL
     Route: 048
     Dates: start: 20050823
  5. ARANESP [Suspect]
     Indication: ANAEMIA
     Dosage: 60 MCG, 1/WEEK, SUBCUTANEOUS
     Route: 058
     Dates: start: 20050801
  6. LOVENOX [Suspect]
     Indication: THROMBOSIS PROPHYLAXIS
     Dosage: 40 MG, DAILY, SUBCUTANEOUS
     Route: 058
     Dates: start: 20050801
  7. INSULIN [Concomitant]
  8. ATENOLOL [Concomitant]
  9. MEGACE [Concomitant]
  10. REGLAN [Concomitant]
  11. PREVACID [Concomitant]
  12. DIFLUCAN [Concomitant]
  13. NPH INSULIN [Concomitant]

REACTIONS (3)
  - DYSARTHRIA [None]
  - DYSPHAGIA [None]
  - INTESTINAL PERFORATION [None]
